FAERS Safety Report 5194567-6 (Version None)
Quarter: 2006Q4

REPORT INFORMATION
  Report Type: 
  Country: None (occurrence: None)
  Receive Date: 20061228
  Receipt Date: 20061221
  Transmission Date: 20070319
  Serious: Yes (Hospitalization)
  Sender: FDA-Public Use
  Company Number: BE-ABBOTT-06P-013-0354054-00

PATIENT
  Sex: Female

DRUGS (5)
  1. HUMIRA [Suspect]
     Indication: RHEUMATOID ARTHRITIS
     Dates: start: 20060423, end: 20061111
  2. BISOPROLOL FUMARATE [Concomitant]
     Indication: DRUG USE FOR UNKNOWN INDICATION
  3. PRAVASINC [Concomitant]
     Indication: DRUG USE FOR UNKNOWN INDICATION
  4. TRANSCODINE [Concomitant]
     Indication: DRUG USE FOR UNKNOWN INDICATION
  5. METHYLPREDNISOLONE 16MG TAB [Concomitant]
     Indication: DRUG USE FOR UNKNOWN INDICATION

REACTIONS (4)
  - MALAISE [None]
  - NAUSEA [None]
  - PRESYNCOPE [None]
  - SYNCOPE [None]
